FAERS Safety Report 8349746-3 (Version None)
Quarter: 2012Q2

REPORT INFORMATION
  Report Type: 
  Country: None (occurrence: None)
  Receive Date: 20120509
  Receipt Date: 20120509
  Transmission Date: 20120825
  Serious: Yes (Life-Threatening, Hospitalization)
  Sender: FDA-Public Use
  Company Number: None

PATIENT
  Age: 71 Year
  Sex: Male
  Weight: 82.9 kg

DRUGS (1)
  1. CEPHALEXIN [Suspect]
     Indication: INGROWING NAIL
     Dosage: .1000 MG ONCE PO
     Route: 048
     Dates: start: 20120207, end: 20120207

REACTIONS (1)
  - ANAPHYLACTIC REACTION [None]
